FAERS Safety Report 10028458 (Version 4)
Quarter: 2014Q1

REPORT INFORMATION
  Report Type: Spontaneous
  Country: US (occurrence: None)
  Receive Date: 20140307
  Receipt Date: 20140325
  Transmission Date: 20141002
  Serious: Yes (Other)
  Sender: FDA-Public Use
  Company Number: AUR-APL-2014-02337

PATIENT
  Age: 64 Year
  Sex: Male

DRUGS (1)
  1. METFORMIN [Suspect]
     Indication: DIABETES MELLITUS
     Dosage: 2000MG (1000MG, 2 IN 1 D),  UNKNOWN
     Dates: start: 200602, end: 201402

REACTIONS (2)
  - Renal injury [None]
  - Renal impairment [None]
